FAERS Safety Report 8493111-5 (Version None)
Quarter: 2012Q3

REPORT INFORMATION
  Report Type: 
  Country: None (occurrence: None)
  Receive Date: 20120706
  Receipt Date: 20120629
  Transmission Date: 20120928
  Serious: Yes (Other)
  Sender: FDA-Public Use
  Company Number: AT-JNJFOC-20120402986

PATIENT
  Age: 78 Year
  Sex: Female
  Weight: 77 kg

DRUGS (4)
  1. UNKNOWN MEDICATION [Concomitant]
     Indication: ARTERIOSCLEROSIS
     Route: 048
  2. NICOTINE [Suspect]
     Indication: SMOKING CESSATION THERAPY
     Dosage: 1 GUM
     Route: 048
     Dates: start: 20120307, end: 20120307
  3. GARLIC PILLS [Concomitant]
     Indication: GENERAL SYMPTOM
     Route: 048
  4. UNKNOWN MEDICATION [Concomitant]
     Route: 048

REACTIONS (3)
  - SYNCOPE [None]
  - NAUSEA [None]
  - WRONG TECHNIQUE IN DRUG USAGE PROCESS [None]
